FAERS Safety Report 13155201 (Version 1)
Quarter: 2017Q1

REPORT INFORMATION
  Report Type: Spontaneous
  Country: US (occurrence: US)
  Receive Date: 20170126
  Receipt Date: 20170126
  Transmission Date: 20170428
  Serious: No
  Sender: FDA-Public Use
  Company Number: US-BRACCO-014138

PATIENT
  Sex: Female

DRUGS (1)
  1. LIQUID POLIBAR PLUS [Suspect]
     Active Substance: BARIUM SULFATE
     Indication: DIAGNOSTIC PROCEDURE
     Route: 047
     Dates: start: 20161109, end: 20161109

REACTIONS (2)
  - Occupational exposure to product [Unknown]
  - No adverse event [Unknown]

NARRATIVE: CASE EVENT DATE: 20161109
